FAERS Safety Report 10853718 (Version 1)
Quarter: 2015Q1

REPORT INFORMATION
  Report Type: Spontaneous
  Country: US (occurrence: None)
  Receive Date: 20150218
  Receipt Date: 20150218
  Transmission Date: 20150721
  Serious: Yes (Other)
  Sender: FDA-Public Use
  Company Number: None

PATIENT
  Age: 51 Year
  Sex: Female
  Weight: 127.92 kg

DRUGS (3)
  1. PREDNISONE. [Suspect]
     Active Substance: PREDNISONE
     Indication: CHRONIC OBSTRUCTIVE PULMONARY DISEASE
     Dosage: 1 PILL
     Route: 048
     Dates: start: 20150213
  2. PREDNISONE. [Suspect]
     Active Substance: PREDNISONE
     Indication: ASTHMA
     Dosage: 1 PILL
     Route: 048
     Dates: start: 20150213
  3. PREDNISONE. [Suspect]
     Active Substance: PREDNISONE
     Indication: MULTIPLE ALLERGIES
     Dosage: 1 PILL
     Route: 048
     Dates: start: 20150213

REACTIONS (22)
  - Agitation [None]
  - Anger [None]
  - Intertrigo [None]
  - Feeling of despair [None]
  - Irritability [None]
  - Malaise [None]
  - Eye irritation [None]
  - Dyspepsia [None]
  - Suicidal ideation [None]
  - Pollakiuria [None]
  - Weight decreased [None]
  - Fungal infection [None]
  - Impulse-control disorder [None]
  - Erythema [None]
  - Dyskinesia [None]
  - Depression [None]
  - Tardive dyskinesia [None]
  - Eyelid oedema [None]
  - Condition aggravated [None]
  - Mania [None]
  - Middle insomnia [None]
  - Pain [None]

NARRATIVE: CASE EVENT DATE: 20150213
